FAERS Safety Report 6956850-0 (Version None)
Quarter: 2010Q3

REPORT INFORMATION
  Report Type: 
  Country: None (occurrence: None)
  Receive Date: 20100826
  Receipt Date: 20100812
  Transmission Date: 20110219
  Serious: Yes (Hospitalization, Disabling)
  Sender: FDA-Public Use
  Company Number: 2010AP001743

PATIENT
  Age: 41 Year
  Sex: Male

DRUGS (7)
  1. RAMIPRIL [Suspect]
     Dosage: 10 MG; QD
  2. FUROSEMIDE [Suspect]
     Dosage: 80 MG; BID
  3. INDOMETHACIN [Suspect]
     Indication: GOUT
     Dosage: 25 MG; TID
  4. WARFARIN SODIUM [Concomitant]
  5. AMIODARONE HCL [Concomitant]
  6. BISOPROLOL FUMARATE [Concomitant]
  7. METOLAZONE [Concomitant]

REACTIONS (6)
  - DEAFNESS NEUROSENSORY [None]
  - DEHYDRATION [None]
  - DIZZINESS [None]
  - HAEMODIALYSIS [None]
  - RENAL FAILURE ACUTE [None]
  - TINNITUS [None]
